FAERS Safety Report 9667705 (Version 4)
Quarter: 2013Q4

REPORT INFORMATION
  Report Type: Spontaneous
  Country: US (occurrence: US)
  Receive Date: 20131104
  Receipt Date: 20131213
  Transmission Date: 20140711
  Serious: Yes (Hospitalization)
  Sender: FDA-Public Use
  Company Number: US-GILEAD-2013-0086895

PATIENT
  Sex: Male

DRUGS (5)
  1. LETAIRIS [Suspect]
     Indication: PULMONARY HYPERTENSION
     Dosage: 5 MG, UNK
     Route: 048
     Dates: start: 20130405
  2. COUMADIN /00014802/ [Suspect]
  3. PROCHLORPERAZINE [Suspect]
  4. TYVASO [Concomitant]
  5. ADCIRCA [Concomitant]

REACTIONS (1)
  - Haemoptysis [Not Recovered/Not Resolved]
